FAERS Safety Report 8757983 (Version 1)
Quarter: 2012Q4

REPORT INFORMATION
  Report Type: 
  Country: US (occurrence: US)
  Receive Date: 20120828
  Receipt Date: 20120828
  Transmission Date: 20130627
  Serious: Yes (Other)
  Sender: FDA-Public Use
  Company Number: US-ELI_LILLY_AND_COMPANY-US201208005444

PATIENT
  Sex: Female

DRUGS (2)
  1. HUMALOG LISPRO [Suspect]
     Indication: DIABETES MELLITUS
     Dosage: 15 u, prn
     Dates: start: 20110527
  2. LANTUS [Concomitant]

REACTIONS (2)
  - Hospice care [Not Recovered/Not Resolved]
  - Product quality issue [None]
